FAERS Safety Report 25224416 (Version 1)
Quarter: 2025Q2

REPORT INFORMATION
  Report Type: Spontaneous
  Country: US (occurrence: None)
  Receive Date: 20250421
  Receipt Date: 20250421
  Transmission Date: 20250716
  Serious: Yes (Hospitalization)
  Sender: FDA-CTU
  Company Number: None

PATIENT
  Age: 60 Year
  Sex: Female
  Weight: 71.55 kg

DRUGS (3)
  1. SINGULAIR [Suspect]
     Active Substance: MONTELUKAST SODIUM
     Indication: Asthma
     Dosage: FREQUENCY : DAILY;?
  2. LISINOPRIL [Concomitant]
     Active Substance: LISINOPRIL
  3. DULOXETINE [Concomitant]
     Active Substance: DULOXETINE

REACTIONS (2)
  - Fall [None]
  - Aphasia [None]

NARRATIVE: CASE EVENT DATE: 20230901
